FAERS Safety Report 7790962-7 (Version None)
Quarter: 2011Q4

REPORT INFORMATION
  Report Type: 
  Country: None (occurrence: None)
  Receive Date: 20111002
  Receipt Date: 20110927
  Transmission Date: 20120403
  Serious: Yes (Other)
  Sender: FDA-Public Use
  Company Number: PHEH2011US01901

PATIENT
  Sex: Female

DRUGS (4)
  1. NEURONTIN [Suspect]
     Dosage: UNK
  2. GILENYA [Suspect]
     Dosage: 0.5 MG, QD
     Route: 048
     Dates: end: 20110601
  3. ASCORBIC ACID [Concomitant]
     Dosage: UNK
  4. VITAMIN B-12 [Concomitant]
     Dosage: UNK

REACTIONS (7)
  - EYE INFLAMMATION [None]
  - DRUG INEFFECTIVE [None]
  - DEPRESSION [None]
  - UVEITIS [None]
  - GAIT DISTURBANCE [None]
  - EYE PAIN [None]
  - FACIAL PAIN [None]
